FAERS Safety Report 9290088 (Version 1)
Quarter: 2013Q2

REPORT INFORMATION
  Report Type: Spontaneous
  Country: US (occurrence: None)
  Receive Date: 20130510
  Receipt Date: 20130510
  Transmission Date: 20140414
  Serious: Yes (Hospitalization)
  Sender: FDA-Public Use
  Company Number: SYM-2013-03669

PATIENT
  Age: 77 Year
  Sex: Male

DRUGS (1)
  1. XENAZINE [Suspect]
     Indication: DYSKINESIA
     Dosage: 2 IN 1 D
     Route: 048
     Dates: start: 20100525, end: 20130503

REACTIONS (1)
  - Cerebrovascular accident [None]
